FAERS Safety Report 10073060 (Version 2)
Quarter: 2014Q2

REPORT INFORMATION
  Report Type: Spontaneous
  Country: AT (occurrence: AT)
  Receive Date: 20140411
  Receipt Date: 20140613
  Transmission Date: 20141212
  Serious: Yes (Hospitalization, Other)
  Sender: FDA-Public Use
  Company Number: AT-INCYTE CORPORATION-2014IN000955

PATIENT
  Sex: Male
  Weight: 78 kg

DRUGS (12)
  1. JAKAVI [Suspect]
     Indication: MYELOFIBROSIS
     Dosage: 15 MG, BID
     Route: 065
     Dates: start: 20121220
  2. JAKAVI [Suspect]
     Dosage: 10 MG, BID
     Route: 065
     Dates: end: 20140108
  3. UROSIN                             /00003301/ [Concomitant]
     Dosage: UNK
     Dates: start: 2005
  4. CONCOR [Concomitant]
     Dosage: UNK
     Dates: start: 2010
  5. DUROGESIC [Concomitant]
  6. AGOPTON [Concomitant]
     Dosage: UNK
     Dates: start: 2005
  7. ASS [Concomitant]
     Dosage: UNK
     Dates: start: 1995, end: 20140108
  8. EPORATIO [Concomitant]
     Dosage: UNK
     Dates: start: 2010
  9. HYDROXYUREA [Concomitant]
  10. LASIX                              /00032601/ [Concomitant]
     Dosage: UNK
     Dates: start: 2005
  11. CAL D VITA [Concomitant]
     Dosage: UNK
     Dates: start: 2005
  12. THYREX [Concomitant]
     Dosage: UNK
     Dates: start: 2005

REACTIONS (6)
  - Epistaxis [Recovered/Resolved]
  - Haemorrhage [Unknown]
  - Thrombocytopenia [Not Recovered/Not Resolved]
  - Leukocytosis [Unknown]
  - Anaemia [Unknown]
  - Splenomegaly [Unknown]
